FAERS Safety Report 5280248-7 (Version None)
Quarter: 2007Q1

REPORT INFORMATION
  Report Type: 
  Country: None (occurrence: None)
  Receive Date: 20070329
  Receipt Date: 20070316
  Transmission Date: 20070707
  Serious: Yes (Hospitalization, Other)
  Sender: FDA-Public Use
  Company Number: PHBS2007JP04298

PATIENT
  Age: 63 Year
  Sex: Female

DRUGS (3)
  1. NEORAL [Suspect]
     Indication: RENAL TRANSPLANT
     Dosage: UNK, UNK
     Route: 065
     Dates: start: 20060201
  2. CELLCEPT [Suspect]
     Indication: RENAL TRANSPLANT
     Dates: start: 20060201
  3. MEDROL [Suspect]
     Indication: RENAL TRANSPLANT

REACTIONS (4)
  - BLOOD CREATININE INCREASED [None]
  - KIDNEY TRANSPLANT REJECTION [None]
  - PANCYTOPENIA [None]
  - VIRAL INFECTION [None]
